FAERS Safety Report 5983750-5 (Version None)
Quarter: 2008Q4

REPORT INFORMATION
  Report Type: 
  Country: None (occurrence: None)
  Receive Date: 20081205
  Receipt Date: 20081205
  Transmission Date: 20090506
  Serious: Yes (Hospitalization, Other)
  Sender: FDA-Public Use
  Company Number: None

PATIENT
  Age: 54 Year
  Sex: Male
  Weight: 80 kg

DRUGS (1)
  1. NOVOSEVEN [Suspect]
     Indication: HAEMORRHAGE
     Dosage: 7.2 MG ONCE IV
     Route: 042
     Dates: start: 20080505

REACTIONS (4)
  - ARTERIAL THROMBOSIS LIMB [None]
  - NASOPHARYNGITIS [None]
  - PERIPHERAL COLDNESS [None]
  - PULSE ABSENT [None]
